FAERS Safety Report 21684937 (Version 2)
Quarter: 2022Q4

REPORT INFORMATION
  Report Type: Report from Study
  Country: US (occurrence: US)
  Receive Date: 20221205
  Receipt Date: 20221209
  Transmission Date: 20230113
  Serious: Yes (Other)
  Sender: FDA-Public Use
  Company Number: US-ALXN-A202206856

PATIENT
  Age: 60 Year
  Sex: Male
  Weight: 290 kg

DRUGS (18)
  1. PREDNISONE [Suspect]
     Active Substance: PREDNISONE
     Indication: Toxicity to various agents
     Dosage: 5 MG, QD
     Route: 048
     Dates: start: 20220425
  2. PREDNISONE [Suspect]
     Active Substance: PREDNISONE
     Indication: Muscle fatigue
  3. SOLIRIS [Suspect]
     Active Substance: ECULIZUMAB
     Dosage: 1200 MG, Q2W
     Route: 042
  4. SOLIRIS [Suspect]
     Active Substance: ECULIZUMAB
     Dosage: 1200 MG, (WEEK 5)
     Route: 042
  5. SOLIRIS [Suspect]
     Active Substance: ECULIZUMAB
     Indication: Myasthenia gravis
     Dosage: 900 MG, QW(WEEKLY FOR 4 WEEKS)
     Route: 042
     Dates: start: 20211026
  6. ALAVERT ALLERGY SINUS D-12 [Concomitant]
     Active Substance: LORATADINE\PSEUDOEPHEDRINE SULFATE
     Indication: Product used for unknown indication
     Dosage: 5-120 MG,EVERY 12 HOURS
     Route: 048
  7. ATORVASTATIN [Concomitant]
     Active Substance: ATORVASTATIN
     Indication: Product used for unknown indication
     Dosage: UNK
     Route: 065
  8. ATORVASTATIN CALCIUM [Concomitant]
     Active Substance: ATORVASTATIN CALCIUM
     Indication: Product used for unknown indication
     Dosage: 20 MG, QD
     Route: 048
  9. CRESTOR [Concomitant]
     Active Substance: ROSUVASTATIN CALCIUM
     Indication: Toxicity to various agents
     Dosage: UNK
     Route: 065
  10. EPINEPHRINE [Concomitant]
     Active Substance: EPINEPHRINE
     Indication: Toxicity to various agents
     Dosage: UNK
     Route: 065
  11. HYDROCHLOROTHIAZIDE [Concomitant]
     Active Substance: HYDROCHLOROTHIAZIDE
     Indication: Product used for unknown indication
     Dosage: UNK
     Route: 065
  12. LIPITOR [Concomitant]
     Active Substance: ATORVASTATIN CALCIUM
     Indication: Toxicity to various agents
     Dosage: UNK
     Route: 065
  13. LISINOPRIL [Concomitant]
     Active Substance: LISINOPRIL
     Indication: Product used for unknown indication
     Dosage: 10 MG, QD
     Route: 048
  14. LISINOPRIL [Concomitant]
     Active Substance: LISINOPRIL
     Dosage: 12.5 MG, UNK
     Route: 048
  15. METFORMIN                          /00082702/ [Concomitant]
     Indication: Product used for unknown indication
     Dosage: 500 MG, QD
     Route: 048
  16. NAPROXEN [Concomitant]
     Active Substance: NAPROXEN
     Indication: Toxicity to various agents
     Dosage: UNK
     Route: 065
  17. PYRIDOSTIGMINE BROMIDE [Concomitant]
     Active Substance: PYRIDOSTIGMINE BROMIDE
     Indication: Product used for unknown indication
     Dosage: 60 MG, (6 TIMES PER DAY)
     Route: 048
  18. ZESTORETIC [Concomitant]
     Active Substance: HYDROCHLOROTHIAZIDE\LISINOPRIL
     Indication: Toxicity to various agents
     Dosage: UNK
     Route: 065

REACTIONS (9)
  - Diabetes mellitus [Unknown]
  - Muscular weakness [Recovering/Resolving]
  - Muscle fatigue [Recovered/Resolved]
  - Muscle strength abnormal [Unknown]
  - Visual impairment [Unknown]
  - Glycosylated haemoglobin increased [Unknown]
  - Infusion site infection [Unknown]
  - Fatigue [Recovering/Resolving]
  - Asthenia [Recovering/Resolving]

NARRATIVE: CASE EVENT DATE: 20220520
